FAERS Safety Report 4816660-7 (Version None)
Quarter: 2005Q4

REPORT INFORMATION
  Report Type: 
  Country: None (occurrence: None)
  Receive Date: 20051028
  Receipt Date: 20051018
  Transmission Date: 20060501
  Serious: Yes (Hospitalization)
  Sender: FDA-Public Use
  Company Number: 2005BI015400

PATIENT
  Age: 60 Year
  Sex: Female

DRUGS (1)
  1. AVONEX [Suspect]
     Indication: MULTIPLE SCLEROSIS
     Dosage: 30 UG; QW; IM
     Route: 030
     Dates: start: 19970601

REACTIONS (6)
  - ACCIDENT AT WORK [None]
  - INJURY [None]
  - LOWER LIMB DEFORMITY [None]
  - POST PROCEDURAL COMPLICATION [None]
  - SPINAL LAMINECTOMY [None]
  - TENDON DISORDER [None]
